FAERS Safety Report 12457494 (Version 3)
Quarter: 2016Q4

REPORT INFORMATION
  Report Type: Report from Study
  Country: US (occurrence: US)
  Receive Date: 20160610
  Receipt Date: 20161010
  Transmission Date: 20170207
  Serious: Yes (Hospitalization, Other)
  Sender: FDA-Public Use
  Company Number: US-GILEAD-2016-0217626

PATIENT
  Age: 68 Year
  Sex: Female

DRUGS (9)
  1. AMBRISENTAN [Suspect]
     Active Substance: AMBRISENTAN
     Indication: PRODUCT USED FOR UNKNOWN INDICATION
     Dosage: 10 MG, QD
     Route: 065
     Dates: start: 20091020
  2. METOLAZONE. [Concomitant]
     Active Substance: METOLAZONE
  3. ORENITRAM [Concomitant]
     Active Substance: TREPROSTINIL
  4. REVATIO [Concomitant]
     Active Substance: SILDENAFIL CITRATE
  5. OXYGEN. [Concomitant]
     Active Substance: OXYGEN
  6. CARVEDIOL [Concomitant]
     Active Substance: CARVEDILOL
  7. LEVOTHYROXINE. [Concomitant]
     Active Substance: LEVOTHYROXINE
  8. TREPROSTINIL [Concomitant]
     Active Substance: TREPROSTINIL
  9. TORASEMIDE [Concomitant]
     Active Substance: TORSEMIDE

REACTIONS (13)
  - Oxygen saturation decreased [Recovered/Resolved]
  - Body temperature increased [Recovered/Resolved]
  - Respiratory failure [Unknown]
  - Pleural effusion [Unknown]
  - Staphylococcal infection [Recovered/Resolved]
  - Fall [Unknown]
  - Fluid overload [Unknown]
  - Blood glucose decreased [Recovered/Resolved]
  - Loss of consciousness [Recovered/Resolved]
  - Thrombosis [Recovered/Resolved]
  - Femoral neck fracture [Unknown]
  - Pericardial effusion [Recovered/Resolved]
  - Hypercapnia [Unknown]
